FAERS Safety Report 12626622 (Version 11)
Quarter: 2017Q2

REPORT INFORMATION
  Report Type: Report from Study
  Country: FR (occurrence: FR)
  Receive Date: 20160805
  Receipt Date: 20170505
  Transmission Date: 20170830
  Serious: Yes (Other)
  Sender: FDA-Public Use
  Company Number: FR-PFIZER INC-2016290688

PATIENT
  Age: 78 Year
  Sex: Female
  Weight: 58 kg

DRUGS (13)
  1. PALBOCICLIB [Suspect]
     Active Substance: PALBOCICLIB
     Indication: BREAST CANCER METASTATIC
     Dosage: 125 MG, DAILY
     Route: 048
     Dates: start: 20160506, end: 20160531
  2. PALBOCICLIB [Suspect]
     Active Substance: PALBOCICLIB
     Dosage: 75 MG, DAILY
     Dates: start: 20170210
  3. XGEVA [Suspect]
     Active Substance: DENOSUMAB
     Indication: BREAST CANCER METASTATIC
     Dosage: 1 DF, MONTHLY (1 INJECTION)
     Route: 058
     Dates: start: 20160518, end: 20160518
  4. XGEVA [Suspect]
     Active Substance: DENOSUMAB
     Dosage: 1 DF, MONTHLY (1 INJECTION)
     Route: 058
     Dates: start: 20160606, end: 20160606
  5. FASLODEX [Concomitant]
     Active Substance: FULVESTRANT
     Dosage: 1 INJECTION, MONTHLY
     Route: 030
     Dates: start: 20160623, end: 20160623
  6. PALBOCICLIB [Suspect]
     Active Substance: PALBOCICLIB
     Dosage: 100 MG, DAILY
     Route: 048
     Dates: start: 20160610, end: 20160830
  7. ZANIDIP [Concomitant]
     Active Substance: LERCANIDIPINE HYDROCHLORIDE
     Indication: HYPERTENSION
     Dosage: 10 (NO UNITS SPECIFIED), DAILY
     Route: 048
     Dates: start: 2000
  8. PALBOCICLIB [Suspect]
     Active Substance: PALBOCICLIB
     Dosage: 75 MG, DAILY
     Dates: start: 20161205
  9. XGEVA [Suspect]
     Active Substance: DENOSUMAB
     Dosage: UNK
     Route: 058
     Dates: start: 2016, end: 20160624
  10. PALBOCICLIB [Suspect]
     Active Substance: PALBOCICLIB
     Dosage: 100 MG, DAILY
     Dates: start: 20160912
  11. FASLODEX [Concomitant]
     Active Substance: FULVESTRANT
     Indication: BREAST CANCER METASTATIC
     Dosage: 500 MG, AT DAY1 AND DAY15
     Route: 030
     Dates: start: 20160506
  12. FASLODEX [Concomitant]
     Active Substance: FULVESTRANT
     Dosage: 500 MG, MONTHLY
     Route: 030
  13. COTAREG [Concomitant]
     Active Substance: HYDROCHLOROTHIAZIDE\VALSARTAN
     Indication: HYPERTENSION
     Dosage: 160/25 (NO UNITS PROVIDED) DAILY
     Route: 048
     Dates: start: 2000

REACTIONS (11)
  - Electrocardiogram T wave amplitude decreased [Unknown]
  - Aspartate aminotransferase increased [Recovered/Resolved]
  - White blood cell count decreased [Not Recovered/Not Resolved]
  - Pyrexia [Recovered/Resolved]
  - Electrocardiogram T wave inversion [Unknown]
  - Dyspnoea exertional [Not Recovered/Not Resolved]
  - Loose tooth [Unknown]
  - Renal failure [Not Recovered/Not Resolved]
  - Neutropenia [Recovered/Resolved]
  - Anaemia [Not Recovered/Not Resolved]
  - Bronchitis [Recovered/Resolved]

NARRATIVE: CASE EVENT DATE: 20160601
